FAERS Safety Report 20976062 (Version 1)
Quarter: 2022Q2

REPORT INFORMATION
  Report Type: Spontaneous
  Country: US (occurrence: None)
  Receive Date: 20220617
  Receipt Date: 20220617
  Transmission Date: 20220721
  Serious: No
  Sender: FDA-Public Use
  Company Number: None

PATIENT
  Age: 38 Year
  Sex: Female

DRUGS (1)
  1. HEATHER [Suspect]
     Active Substance: NORETHINDRONE
     Dosage: FREQUENCY : DAILY;?
     Route: 048

REACTIONS (3)
  - Product substitution issue [None]
  - Dysmenorrhoea [None]
  - Intermenstrual bleeding [None]
